FAERS Safety Report 17736927 (Version 1)
Quarter: 2020Q2

REPORT INFORMATION
  Report Type: Spontaneous
  Country: GB (occurrence: GB)
  Receive Date: 20200502
  Receipt Date: 20200502
  Transmission Date: 20200714
  Serious: Yes (Other)
  Sender: FDA-Public Use
  Company Number: GB-TEVA-2020-GB-1228498

PATIENT
  Age: 88 Year
  Sex: Female
  Weight: 59.87 kg

DRUGS (4)
  1. CEFALEXIN [Concomitant]
     Active Substance: CEPHALEXIN
  2. MOXONIDINE [Concomitant]
     Active Substance: MOXONIDINE
  3. TRIMETHOPRIM. [Suspect]
     Active Substance: TRIMETHOPRIM
     Indication: URINARY TRACT INFECTION
     Dosage: 200 MG
     Route: 048
     Dates: start: 20200407, end: 20200408
  4. LEVOTHYROXINE. [Concomitant]
     Active Substance: LEVOTHYROXINE

REACTIONS (5)
  - Blindness [Recovering/Resolving]
  - Photophobia [Unknown]
  - Apraxia [Unknown]
  - Eye pain [Recovering/Resolving]
  - Malaise [Recovering/Resolving]

NARRATIVE: CASE EVENT DATE: 20200408
